FAERS Safety Report 16681836 (Version 1)
Quarter: 2019Q3

REPORT INFORMATION
  Report Type: Spontaneous
  Country: SG (occurrence: SG)
  Receive Date: 20190808
  Receipt Date: 20190808
  Transmission Date: 20191004
  Serious: Yes (Hospitalization)
  Sender: FDA-Public Use
  Company Number: SG-SA-2019SA208142

PATIENT
  Age: 47 Year
  Sex: Female
  Weight: 79.7 kg

DRUGS (3)
  1. CYCLOPHOSPHAMIDE. [Concomitant]
     Active Substance: CYCLOPHOSPHAMIDE
     Indication: CHEMOTHERAPY
     Dosage: 1080 MG, QCY
     Route: 042
     Dates: start: 20190320, end: 20190320
  2. GRANISETRON [Concomitant]
     Active Substance: GRANISETRON
     Indication: ANTIEMETIC SUPPORTIVE CARE
     Dosage: 1 MG, QCY
     Route: 042
     Dates: start: 20190320, end: 20190320
  3. DOCETAXEL. [Suspect]
     Active Substance: DOCETAXEL
     Indication: CHEMOTHERAPY
     Dosage: 130 MG, QCY
     Route: 042
     Dates: start: 20190320, end: 20190320

REACTIONS (4)
  - Abdominal distension [Recovered/Resolved]
  - Feeling hot [Recovered/Resolved]
  - Dyspnoea [Recovered/Resolved]
  - Daydreaming [Recovered/Resolved]

NARRATIVE: CASE EVENT DATE: 20190320
